FAERS Safety Report 19499165 (Version 1)
Quarter: 2021Q3

REPORT INFORMATION
  Report Type: Spontaneous
  Country: US (occurrence: US)
  Receive Date: 20210707
  Receipt Date: 20210707
  Transmission Date: 20211014
  Serious: Yes (Death, Other)
  Sender: FDA-Public Use
  Company Number: US-SHILPA MEDICARE LIMITED-SML-US-2021-00860

PATIENT
  Age: 86 Year

DRUGS (1)
  1. DOCETAXEL, UNKNOWN [Suspect]
     Active Substance: DOCETAXEL
     Indication: URINARY TRACT CARCINOMA IN SITU
     Dosage: INDUCTION TREATMENT
     Route: 061

REACTIONS (3)
  - Metastatic neoplasm [Fatal]
  - Drug ineffective for unapproved indication [Unknown]
  - Drug ineffective [Unknown]
